FAERS Safety Report 10668625 (Version 2)
Quarter: 2015Q1

REPORT INFORMATION
  Report Type: Spontaneous
  Country: IT (occurrence: IT)
  Receive Date: 20141222
  Receipt Date: 20150209
  Transmission Date: 20150720
  Serious: Yes (Death)
  Sender: FDA-Public Use
  Company Number: IT-ELI_LILLY_AND_COMPANY-IT201412007062

PATIENT
  Age: 64 Year
  Sex: Female
  Weight: 63 kg

DRUGS (6)
  1. CARBOPLATINO [Suspect]
     Active Substance: CARBOPLATIN
     Indication: LUNG ADENOCARCINOMA STAGE IV
     Dosage: 590 MG/M2, EVERY 21 DAYS
     Route: 042
     Dates: start: 20141104, end: 20141104
  2. ALIMTA [Suspect]
     Active Substance: PEMETREXED DISODIUM
     Indication: LUNG ADENOCARCINOMA STAGE IV
     Dosage: 500 MG/M2, EVERY 21 DAYS
     Route: 042
     Dates: start: 20141104, end: 20141104
  3. FLUIFORT                           /00408203/ [Concomitant]
     Indication: COUGH
     Dosage: 1 DF, BID
     Route: 065
     Dates: start: 20140925
  4. DIHYDROCODEINE                     /00063002/ [Concomitant]
     Indication: COUGH
     Dosage: 15 GTT, PRN
     Route: 065
  5. FOLINGRAV [Concomitant]
     Indication: SUPPLEMENTATION THERAPY
     Dosage: 1 DF, QD
     Route: 065
     Dates: start: 20140925, end: 20141211
  6. DOBETIN                            /00056201/ [Concomitant]
     Active Substance: CYANOCOBALAMIN
     Indication: SUPPLEMENTATION THERAPY
     Dosage: 1000 MG, OTHER
     Route: 030
     Dates: start: 20140925

REACTIONS (4)
  - Colitis ischaemic [Fatal]
  - Febrile neutropenia [Fatal]
  - Pancytopenia [Fatal]
  - Off label use [Unknown]

NARRATIVE: CASE EVENT DATE: 20141112
